FAERS Safety Report 5518462-5 (Version None)
Quarter: 2007Q4

REPORT INFORMATION
  Report Type: 
  Country: None (occurrence: None)
  Receive Date: 20071113
  Receipt Date: 20071113
  Transmission Date: 20080405
  Serious: Yes (Hospitalization)
  Sender: FDA-Public Use
  Company Number: None

PATIENT
  Sex: Female
  Weight: 57.97 kg

DRUGS (2)
  1. CISPLATIN [Suspect]
     Dosage: 78 MG
  2. TOPOTECAN [Suspect]
     Dosage: 3.51 MG

REACTIONS (6)
  - HAEMATURIA [None]
  - HYDRONEPHROSIS [None]
  - NEOPLASM PROGRESSION [None]
  - NEUTROPENIA [None]
  - PLATELET COUNT ABNORMAL [None]
  - VAGINAL HAEMORRHAGE [None]
